FAERS Safety Report 25219479 (Version 1)
Quarter: 2025Q2

REPORT INFORMATION
  Report Type: Report from Study
  Country: US (occurrence: US)
  Receive Date: 20250421
  Receipt Date: 20250421
  Transmission Date: 20250716
  Serious: Yes (Other)
  Sender: ROCHE
  Company Number: US-ROCHE-10000263562

PATIENT
  Age: 94 Year
  Sex: Female

DRUGS (2)
  1. FARICIMAB [Suspect]
     Active Substance: FARICIMAB
     Indication: Neovascular age-related macular degeneration
     Route: 050
  2. AFLIBERCEPT [Concomitant]
     Active Substance: AFLIBERCEPT

REACTIONS (1)
  - Blindness [Recovered/Resolved]
